FAERS Safety Report 7074112-0 (Version None)
Quarter: 2010Q4

REPORT INFORMATION
  Report Type: 
  Country: None (occurrence: None)
  Receive Date: 20101029
  Receipt Date: 20101020
  Transmission Date: 20110411
  Serious: Yes (Death, Life-Threatening, Hospitalization, Other)
  Sender: FDA-Public Use
  Company Number: DE-ALEXION-A201000960

PATIENT
  Sex: Male

DRUGS (47)
  1. SOLIRIS [Suspect]
     Indication: HAEMOLYTIC URAEMIC SYNDROME
     Dosage: 900 MG, QW
     Route: 042
     Dates: start: 20090515, end: 20090605
  2. SOLIRIS [Suspect]
     Dosage: 1200 MG, SINGLE
     Route: 042
     Dates: start: 20090612, end: 20090612
  3. SOLIRIS [Suspect]
     Dosage: 1200 MG, SINGLE
     Route: 042
     Dates: start: 20090623, end: 20090623
  4. SOLIRIS [Suspect]
     Dosage: 900 MG, SINGLE
     Route: 042
     Dates: start: 20090707, end: 20090707
  5. SOLIRIS [Suspect]
     Dosage: 1200 MG, SINGLE
     Route: 042
     Dates: start: 20090710, end: 20090710
  6. SOLIRIS [Suspect]
     Dosage: 900 MG, UNK
     Route: 042
     Dates: start: 20090715, end: 20090806
  7. IMMUNOSUPPRESSANTS [Concomitant]
     Indication: HAEMOLYTIC URAEMIC SYNDROME
  8. AMPHOTERICIN B [Concomitant]
     Indication: MUCOSAL INFLAMMATION
     Dosage: UNK
     Dates: start: 20090101, end: 20090701
  9. ALDACTONE [Concomitant]
     Indication: PLEURAL EFFUSION
     Dosage: UNK
     Dates: start: 20090527, end: 20090527
  10. ALDACTONE [Concomitant]
     Dosage: UNK
     Dates: start: 20090529, end: 20090602
  11. ALDACTONE [Concomitant]
     Dosage: 100 UNK, UNK
     Dates: start: 20090602, end: 20090605
  12. KALIUMCHLORIDE [Concomitant]
     Indication: HYPOKALAEMIA
     Dosage: UNK
     Dates: start: 20090531, end: 20090531
  13. KALIUMCHLORIDE [Concomitant]
     Dosage: UNK
     Dates: start: 20090603, end: 20090603
  14. VITAMIN C                          /00008001/ [Concomitant]
     Indication: VITAMIN SUPPLEMENTATION
     Dosage: UNK
     Dates: start: 20090603, end: 20090605
  15. KIONG [Concomitant]
     Indication: GRAFT VERSUS HOST DISEASE
     Dosage: UNK
     Dates: start: 20090603, end: 20090603
  16. METOPROLOL SUCCINATE [Concomitant]
     Indication: CORONARY ARTERY DISEASE
     Dosage: UNK
     Dates: start: 20090601, end: 20090610
  17. ISOPTIN                            /00014301/ [Concomitant]
     Indication: CARDIAC FIBRILLATION
     Dosage: 2.5
     Dates: start: 20090531, end: 20090531
  18. ISOPTIN                            /00014301/ [Concomitant]
     Dosage: 2.5 UNK, UNK
     Dates: start: 20090601, end: 20090601
  19. GLUCOSE [Concomitant]
     Indication: SUPPLEMENTATION THERAPY
     Dosage: UNK
     Dates: start: 20090527, end: 20090527
  20. GLUCOSE [Concomitant]
     Dosage: UNK
     Dates: start: 20090602, end: 20090605
  21. GENTAMICIN [Concomitant]
     Indication: STENOTROPHOMONAS INFECTION
     Dosage: 160
     Dates: start: 20090602, end: 20090602
  22. LORMETAZEPAM [Concomitant]
     Indication: SLEEP DISORDER
     Dosage: UNK
     Dates: start: 20090531, end: 20090531
  23. LASIX [Concomitant]
     Indication: RENAL FAILURE
     Dosage: UNK
     Dates: start: 20090531, end: 20090531
  24. URSO FALK [Concomitant]
     Indication: ACUTE GRAFT VERSUS HOST DISEASE IN LIVER
     Dosage: UNK
     Dates: start: 20090527, end: 20090531
  25. URSO FALK [Concomitant]
     Dosage: UNK
     Dates: start: 20090601, end: 20090609
  26. CANCIDAS [Concomitant]
     Dosage: UNK
     Dates: start: 20090526, end: 20090529
  27. CANCIDAS [Concomitant]
     Dosage: UNK
     Dates: start: 20090530, end: 20090622
  28. FURORESE                           /00032601/ [Concomitant]
     Indication: RENAL FAILURE
     Dosage: UNK
     Dates: start: 20090531, end: 20090602
  29. CYCLOSPORINE [Concomitant]
     Indication: GRAFT VERSUS HOST DISEASE
     Dosage: UNK
     Dates: start: 20090524, end: 20090524
  30. CYCLOSPORINE [Concomitant]
     Dosage: UNK
     Dates: start: 20090525, end: 20090525
  31. CYCLOSPORINE [Concomitant]
     Dosage: UNK
     Dates: start: 20090526, end: 20090529
  32. CYCLOSPORINE [Concomitant]
     Dosage: UNK
     Dates: start: 20090529, end: 20090529
  33. CYCLOSPORINE [Concomitant]
     Dosage: UNK
     Dates: start: 20090530, end: 20090530
  34. SOLU DACORTIN H [Concomitant]
     Indication: PREMEDICATION
     Dosage: UNK
     Dates: start: 20090529, end: 20090529
  35. RANITIDINE [Concomitant]
     Indication: GASTRITIS PROPHYLAXIS
     Dosage: UNK
     Dates: start: 20090529, end: 20090529
  36. TYGACIL [Concomitant]
     Indication: INFECTION
     Dosage: UNK
     Dates: start: 20090528, end: 20090605
  37. TYGACIL [Concomitant]
     Dosage: UNK
     Dates: start: 20090526, end: 20090527
  38. VALERIAN EXTRACT [Concomitant]
     Indication: SLEEP DISORDER
     Dosage: UNK
     Dates: start: 20090528, end: 20090528
  39. MOXIFLOXACIN [Concomitant]
     Indication: STENOTROPHOMONAS INFECTION
     Dosage: UNK
     Dates: start: 20090526, end: 20090613
  40. CYMEVEN                            /00784201/ [Concomitant]
     Indication: CYTOMEGALOVIRUS INFECTION
     Dosage: UNK
     Dates: start: 20090520, end: 20090521
  41. CYMEVEN                            /00784201/ [Concomitant]
     Dosage: UNK
     Dates: start: 20090522, end: 20090522
  42. CYMEVEN                            /00784201/ [Concomitant]
     Dosage: UNK
     Dates: start: 20090523, end: 20090524
  43. CYMEVEN                            /00784201/ [Concomitant]
     Dosage: UNK
     Dates: start: 20090525, end: 20090525
  44. CYMEVEN                            /00784201/ [Concomitant]
     Dosage: UNK
     Dates: start: 20090526, end: 20090607
  45. INSULIN [Concomitant]
     Indication: DIABETES MELLITUS
     Dosage: UNK
     Dates: start: 20090419, end: 20090614
  46. STRUCTOKABIVEN                     /05981201/ [Concomitant]
     Indication: PARENTERAL NUTRITION
     Dosage: UNK
     Dates: start: 20090416, end: 20090613
  47. HEPARIN SODIUM [Concomitant]
     Indication: THROMBOSIS PROPHYLAXIS
     Dosage: UNK
     Dates: start: 20090402, end: 20090615

REACTIONS (6)
  - ACUTE GRAFT VERSUS HOST DISEASE IN INTESTINE [None]
  - BRONCHOPULMONARY ASPERGILLOSIS [None]
  - DEVICE RELATED INFECTION [None]
  - LOBAR PNEUMONIA [None]
  - MULTI-ORGAN FAILURE [None]
  - STENOTROPHOMONAS INFECTION [None]
